FAERS Safety Report 6788683-2 (Version None)
Quarter: 2010Q2

REPORT INFORMATION
  Report Type: 
  Country: None (occurrence: None)
  Receive Date: 20100623
  Receipt Date: 20080430
  Transmission Date: 20101027
  Serious: No
  Sender: FDA-Public Use
  Company Number: US-PFIZER INC-2008035444

PATIENT
  Age: 25 Year
  Sex: Female
  Weight: 68.181 kg

DRUGS (2)
  1. GEODON [Suspect]
     Indication: MENTAL DISORDER
     Dates: start: 20080301
  2. ABILIFY [Concomitant]

REACTIONS (3)
  - DIZZINESS [None]
  - DRUG INEFFECTIVE [None]
  - FATIGUE [None]
